FAERS Safety Report 15618550 (Version 1)
Quarter: 2018Q4

REPORT INFORMATION
  Report Type: Spontaneous
  Country: US (occurrence: US)
  Receive Date: 20181114
  Receipt Date: 20181114
  Transmission Date: 20190205
  Serious: No
  Sender: FDA-Public Use
  Company Number: US-PFIZER INC-2018455919

PATIENT
  Age: 20 Year
  Sex: Female

DRUGS (1)
  1. GENOTROPIN MQ [Suspect]
     Active Substance: SOMATROPIN
     Indication: BLOOD GROWTH HORMONE
     Dosage: UNK UNK, 1X/DAY (0.5 BY INJECTION ONCE A DAY)

REACTIONS (1)
  - Treatment noncompliance [Not Recovered/Not Resolved]

NARRATIVE: CASE EVENT DATE: 201809
